FAERS Safety Report 18769464 (Version 6)
Quarter: 2022Q3

REPORT INFORMATION
  Report Type: Spontaneous
  Country: US (occurrence: US)
  Receive Date: 20210121
  Receipt Date: 20220803
  Transmission Date: 20221026
  Serious: Yes (Hospitalization, Other)
  Sender: FDA-Public Use
  Company Number: US-BAYER-2021-021044

PATIENT
  Age: 43 Year
  Sex: Female

DRUGS (2)
  1. MIRENA [Suspect]
     Active Substance: LEVONORGESTREL
     Indication: Heavy menstrual bleeding
     Dosage: 20?G/DAY
     Route: 015
     Dates: start: 2013
  2. MIRENA [Suspect]
     Active Substance: LEVONORGESTREL

REACTIONS (26)
  - Embedded device [None]
  - Genital haemorrhage [Recovered/Resolved]
  - Urinary retention [None]
  - Epilepsy [None]
  - Intentional self-injury [None]
  - Constipation [None]
  - Abdominal pain upper [None]
  - Hormone level abnormal [Not Recovered/Not Resolved]
  - Aggression [Not Recovered/Not Resolved]
  - Muscular weakness [Not Recovered/Not Resolved]
  - Device use issue [None]
  - Pain [None]
  - Abdominal pain lower [None]
  - Swelling [None]
  - Mood swings [None]
  - Multiple allergies [None]
  - Blood pressure fluctuation [None]
  - Insomnia [None]
  - Cardiomegaly [None]
  - Dyskinesia [None]
  - Raynaud^s phenomenon [None]
  - Rash [None]
  - Fungal infection [None]
  - Urinary tract infection [None]
  - Snoring [None]
  - Respiratory arrest [None]

NARRATIVE: CASE EVENT DATE: 20210101
